FAERS Safety Report 7650815-1 (Version None)
Quarter: 2011Q3

REPORT INFORMATION
  Report Type: 
  Country: None (occurrence: None)
  Receive Date: 20110802
  Receipt Date: 20110719
  Transmission Date: 20111222
  Serious: Yes (Hospitalization, Other)
  Sender: FDA-Public Use
  Company Number: US-ELI_LILLY_AND_COMPANY-US201106009055

PATIENT
  Sex: Female

DRUGS (2)
  1. SIMVASTATIN [Concomitant]
  2. FORTEO [Suspect]
     Indication: OSTEOPOROSIS
     Dosage: 20 UG, QD
     Route: 065
     Dates: start: 20110405, end: 20110505

REACTIONS (2)
  - SMALL INTESTINAL OBSTRUCTION [None]
  - LIGAMENT DISORDER [None]
